FAERS Safety Report 16232334 (Version 1)
Quarter: 2019Q2

REPORT INFORMATION
  Report Type: Spontaneous
  Country: DE (occurrence: DE)
  Receive Date: 20190424
  Receipt Date: 20190424
  Transmission Date: 20190711
  Serious: Yes (Hospitalization, Other)
  Sender: FDA-Public Use
  Company Number: PHHY2019DE091263

PATIENT
  Sex: Female
  Weight: 85 kg

DRUGS (1)
  1. INTERFERON BETA-1B [Suspect]
     Active Substance: INTERFERON BETA-1B
     Indication: MULTIPLE SCLEROSIS
     Dosage: 500 UG, QW (250 ?G, BIW)
     Route: 058
     Dates: start: 19950510

REACTIONS (14)
  - Lumbar vertebral fracture [Unknown]
  - Cerebrovascular accident [Recovered/Resolved]
  - Back pain [Unknown]
  - Urinary retention [Not Recovered/Not Resolved]
  - Oedema peripheral [Not Recovered/Not Resolved]
  - Osteoporosis [Not Recovered/Not Resolved]
  - Headache [Unknown]
  - Rib fracture [Unknown]
  - Inappropriate schedule of product administration [Unknown]
  - Thoracic vertebral fracture [Unknown]
  - Chest pain [Unknown]
  - Influenza like illness [Unknown]
  - Facial pain [Unknown]
  - Musculoskeletal pain [Unknown]

NARRATIVE: CASE EVENT DATE: 1995
